FAERS Safety Report 10040790 (Version 2)
Quarter: 2014Q2

REPORT INFORMATION
  Report Type: Spontaneous
  Country: JP (occurrence: JP)
  Receive Date: 20140327
  Receipt Date: 20140409
  Transmission Date: 20141212
  Serious: Yes (Other)
  Sender: FDA-Public Use
  Company Number: PHHY2014JP033968

PATIENT
  Age: 44 Year
  Sex: Female

DRUGS (6)
  1. HYDRALAZINE [Suspect]
     Indication: BLOOD PRESSURE
     Route: 048
  2. OXYTOCIN [Suspect]
     Indication: LABOUR INDUCTION
  3. DIAZEPAM [Suspect]
     Indication: CONVULSION
     Route: 042
  4. PROSTAGLANDIN E2 [Suspect]
     Indication: INDUCED LABOUR
  5. MAGNESIUM SULPHATE                 /01097001/ [Concomitant]
     Indication: ECLAMPSIA
  6. NAFAMOSTAT MESILATE [Concomitant]

REACTIONS (6)
  - Intracranial venous sinus thrombosis [Unknown]
  - Altered state of consciousness [Recovered/Resolved]
  - Blood pressure increased [Unknown]
  - Convulsion [Recovered/Resolved]
  - Foetal heart rate decreased [Unknown]
  - Maternal exposure during pregnancy [Unknown]
